FAERS Safety Report 14916402 (Version 1)
Quarter: 2018Q2

REPORT INFORMATION
  Report Type: Spontaneous
  Country: TJ (occurrence: TJ)
  Receive Date: 20180519
  Receipt Date: 20180519
  Transmission Date: 20180711
  Serious: Yes (Death, Life-Threatening, Disabling, Other)
  Sender: FDA-Public Use
  Company Number: TJ-009507513-1805TJK006567

PATIENT
  Age: 55 Year
  Sex: Female
  Weight: 35 kg

DRUGS (8)
  1. ALBUMIN HUMAN [Concomitant]
     Active Substance: ALBUMIN HUMAN
     Dosage: UNK
     Dates: start: 20180228, end: 20180312
  2. CYCLOSERINE. [Suspect]
     Active Substance: CYCLOSERINE
     Dosage: 500 MG, QD
     Dates: start: 20180228
  3. IMIPENEM AND CILASTATIN [Suspect]
     Active Substance: CILASTATIN SODIUM\IMIPENEM
     Dosage: 1000 MG, BID
     Dates: start: 20180228
  4. CLOFAZIMINE [Suspect]
     Active Substance: CLOFAZIMINE
     Dosage: 100 MG, QD
     Dates: start: 20180228
  5. LINEZOLID. [Suspect]
     Active Substance: LINEZOLID
     Dosage: 600 MG, QD
     Dates: start: 20180228
  6. PYRAZINAMIDE. [Suspect]
     Active Substance: PYRAZINAMIDE
     Dosage: 800 MG, QD
     Dates: start: 20180228
  7. DELAMANID [Suspect]
     Active Substance: DELAMANID
     Dosage: 100 MG, BID
     Dates: start: 20180228
  8. MOXIFLOXACIN HYDROCHLORIDE. [Suspect]
     Active Substance: MOXIFLOXACIN HYDROCHLORIDE
     Dosage: 400 MG, QD
     Dates: start: 20180228

REACTIONS (2)
  - Pulmonary tuberculosis [Unknown]
  - Respiratory failure [Fatal]

NARRATIVE: CASE EVENT DATE: 2018
